FAERS Safety Report 14937084 (Version 1)
Quarter: 2018Q2

REPORT INFORMATION
  Report Type: Spontaneous
  Country: IT (occurrence: IT)
  Receive Date: 20180525
  Receipt Date: 20180525
  Transmission Date: 20180711
  Serious: Yes (Other)
  Sender: FDA-Public Use
  Company Number: IT-B.I. PHARMACEUTICALS,INC./RIDGEFIELD-2018-BI-027601

PATIENT
  Age: 74 Year
  Sex: Male

DRUGS (1)
  1. JARDIANCE [Suspect]
     Active Substance: EMPAGLIFLOZIN
     Indication: TYPE 2 DIABETES MELLITUS
     Route: 065
     Dates: start: 20170913

REACTIONS (9)
  - Fall [Unknown]
  - Dizziness [Unknown]
  - Subdural haematoma [Unknown]
  - Asthenia [Unknown]
  - Headache [Unknown]
  - Hyperpyrexia [Unknown]
  - Respiratory tract congestion [Unknown]
  - Inflammatory marker increased [Unknown]
  - Pleural effusion [Unknown]

NARRATIVE: CASE EVENT DATE: 201803
